FAERS Safety Report 6846668-1 (Version None)
Quarter: 2010Q3

REPORT INFORMATION
  Report Type: 
  Country: None (occurrence: None)
  Receive Date: 20100713
  Receipt Date: 20100701
  Transmission Date: 20110219
  Serious: Yes (Other)
  Sender: FDA-Public Use
  Company Number: DSM-2010-01000

PATIENT
  Age: 77 Year
  Sex: Female
  Weight: 64 kg

DRUGS (2)
  1. SEVIKAR (OLMESARTAN MEDOXOMIL, AMLODIPINE BESILATE) (TABLET) (OLMESART [Suspect]
     Indication: HYPERTENSION
     Dosage: 20/5 MG, ORAL
     Route: 048
     Dates: start: 20090710, end: 20100315
  2. PANTOPRAZOLE SODIUM [Concomitant]

REACTIONS (1)
  - TOXIC SKIN ERUPTION [None]
